FAERS Safety Report 9052526 (Version 2)
Quarter: 2013Q2

REPORT INFORMATION
  Report Type: Report from Study
  Country: US (occurrence: US)
  Receive Date: 20130207
  Receipt Date: 20130513
  Transmission Date: 20140414
  Serious: Yes (Death, Hospitalization, Other)
  Sender: FDA-Public Use
  Company Number: PHEH2013US002927

PATIENT
  Sex: Female

DRUGS (24)
  1. ZOMETA [Suspect]
     Indication: BONE CANCER
     Dosage: 4 MG, PER 5 ML MONTHLY
     Route: 042
  2. DEXTROSE [Concomitant]
     Dosage: 12.5-25 MG
     Route: 042
  3. MEDROL [Concomitant]
     Dosage: 60 MG, UNK
     Route: 042
  4. DELTASONE [Concomitant]
     Dosage: 60 MG, DAILY
     Route: 048
  5. KLOR-CON [Concomitant]
     Dosage: 20 MEQ ONCE
     Route: 048
  6. AMARYL [Concomitant]
     Dosage: 1 MG, UNK
     Route: 048
  7. HUMALOG [Concomitant]
     Dosage: UNK UKN, UNK
     Route: 058
  8. GLUCOSE [Concomitant]
     Dosage: 16 GM 4 TABLET
     Route: 048
  9. GLUCAGEN [Concomitant]
     Dosage: 1 MG, UNK
     Route: 030
  10. CARDIZEM [Concomitant]
     Dosage: 30 MG, UNK
  11. PROTONIX [Concomitant]
     Dosage: 40 MG, UNK
     Route: 058
  12. LOVENOX [Concomitant]
     Dosage: 40 MG, UNK
     Route: 058
  13. VERSED [Concomitant]
     Dosage: 2 MG, UNK
     Route: 042
  14. FENTANYL CITRATE [Concomitant]
     Dosage: 50 UG, UNK
     Route: 042
  15. BACTRIM DS [Concomitant]
     Dosage: 2 DF, UNK
  16. ROBITUSSIN A C [Concomitant]
     Dosage: 100-10 MG/5 ML
     Route: 048
  17. SALINE [Concomitant]
     Dosage: 5 ML, UNK
  18. HYDROCODONE [Concomitant]
     Dosage: 1 DF(5-325 MG)
     Route: 048
  19. MORFINE [Concomitant]
     Dosage: 2 MG, UNK
     Route: 042
  20. TYLENOL [Concomitant]
     Dosage: 650 MG, UNK
     Route: 048
  21. ONDANSETRON [Concomitant]
     Dosage: 4 MG, UNK
     Route: 042
  22. PROVENTIL [Concomitant]
     Dosage: 2.5 MG, UNK
  23. LEVAQUIN [Concomitant]
     Dosage: 750 MG, UNK
     Route: 042
  24. SODIUM CHLORIDE [Concomitant]
     Dosage: 5-10 ML
     Route: 042

REACTIONS (6)
  - Death [Fatal]
  - Metastases to bone [Unknown]
  - Malignant neoplasm progression [Unknown]
  - Metastases to lung [Unknown]
  - Pulmonary oedema [Unknown]
  - Pneumothorax [Unknown]
